FAERS Safety Report 24654123 (Version 2)
Quarter: 2024Q4

REPORT INFORMATION
  Report Type: Spontaneous
  Country: TR (occurrence: TR)
  Receive Date: 20241122
  Receipt Date: 20241130
  Transmission Date: 20250115
  Serious: Yes (Disabling)
  Sender: ABBVIE
  Company Number: TR-LUNDBECK-DKLU4007063

PATIENT
  Age: 23 Year
  Sex: Male

DRUGS (1)
  1. CIPRALEX [Suspect]
     Active Substance: ESCITALOPRAM OXALATE
     Indication: Major depression
     Dosage: UNDERDOSE: 0.5MG
     Route: 048
     Dates: start: 20241106

REACTIONS (6)
  - Underdose [Unknown]
  - Muscle spasms [Recovering/Resolving]
  - Hypoaesthesia [Recovering/Resolving]
  - Motor dysfunction [Recovering/Resolving]
  - Hyponatraemia [Recovering/Resolving]
  - Blood potassium decreased [Recovering/Resolving]

NARRATIVE: CASE EVENT DATE: 20241107
